FAERS Safety Report 8658976 (Version 3)
Quarter: 2012Q4

REPORT INFORMATION
  Report Type: 
  Country: DK (occurrence: JP)
  Receive Date: 20120710
  Receipt Date: 20121109
  Transmission Date: 20130627
  Serious: No
  Sender: FDA-Public Use
  Company Number: JP-SHIRE-ALL1-2012-03204

PATIENT
  Age: 13 Year
  Sex: Female

DRUGS (1)
  1. 426 (MIDODRINE) [Suspect]
     Indication: ORTHOSTATIC INTOLERANCE
     Dosage: 2 mg, 2x/day:bid
     Route: 048
     Dates: start: 20120611, end: 20120630

REACTIONS (1)
  - Urticaria [Recovered/Resolved]
